FAERS Safety Report 6980438-9 (Version None)
Quarter: 2010Q3

REPORT INFORMATION
  Report Type: 
  Country: None (occurrence: None)
  Receive Date: 20100908
  Receipt Date: 20100830
  Transmission Date: 20110219
  Serious: Yes (Other)
  Sender: FDA-Public Use
  Company Number: 2010US003522

PATIENT
  Age: 71 Year
  Sex: Male
  Weight: 68 kg

DRUGS (2)
  1. AMBISOME [Suspect]
     Indication: PRODUCT USED FOR UNKNOWN INDICATION
     Dosage: 680 G, UID/QD. IV NOS, 3 MG/KG, UID/QD, IV NOS
     Route: 042
     Dates: start: 20100818, end: 20100801
  2. AMBISOME [Suspect]
     Indication: PRODUCT USED FOR UNKNOWN INDICATION
     Dosage: 680 G, UID/QD. IV NOS, 3 MG/KG, UID/QD, IV NOS
     Route: 042
     Dates: start: 20100801

REACTIONS (1)
  - CHOLESTASIS [None]
